FAERS Safety Report 8850447 (Version 1)
Quarter: 2012Q4

REPORT INFORMATION
  Report Type: 
  Country: GB (occurrence: GB)
  Receive Date: 20121019
  Receipt Date: 20121019
  Transmission Date: 20130627
  Serious: Yes (Hospitalization)
  Sender: FDA-Public Use
  Company Number: GB-PFIZER INC-2012254778

PATIENT
  Age: 46 Year
  Sex: Female
  Weight: 56.6 kg

DRUGS (9)
  1. GENOTROPIN [Suspect]
     Indication: GROWTH HORMONE DEFICIENCY
     Dosage: 7 injections/week
     Route: 058
     Dates: start: 20010322
  2. LAMOTRIGINE [Concomitant]
     Indication: EPILEPSY
     Dosage: UNK
     Dates: start: 2000
  3. LAMOTRIGINE [Concomitant]
     Indication: CONVULSION
  4. LAMOTRIGINE [Concomitant]
     Indication: CONVULSION
  5. ESTRACOMB [Concomitant]
     Indication: BLOOD LUTEINISING HORMONE DECREASED
     Dosage: UNK
     Dates: start: 20000730
  6. ESTRACOMB [Concomitant]
     Indication: BLOOD FOLLICLE STIMULATING HORMONE DECREASED
  7. ESTRACOMB [Concomitant]
     Indication: HYPOGONADISM FEMALE
  8. HYDROCORTISONE [Concomitant]
     Indication: ADRENAL INSUFFICIENCY
     Dosage: UNK
     Dates: start: 20030116
  9. HYDROCORTISONE [Concomitant]
     Indication: BLOOD CORTICOTROPHIN DECREASED

REACTIONS (1)
  - Blood cortisol abnormal [Unknown]
